FAERS Safety Report 5604474-X (Version None)
Quarter: 2008Q1

REPORT INFORMATION
  Report Type: 
  Country: None (occurrence: None)
  Receive Date: 20080128
  Receipt Date: 20080116
  Transmission Date: 20080703
  Serious: Yes (Other)
  Sender: FDA-Public Use
  Company Number: US-ROCHE-492337

PATIENT

DRUGS (3)
  1. ACCUTANE [Suspect]
     Dates: start: 19980307, end: 19980407
  2. ACCUTANE [Suspect]
     Dates: start: 19980407
  3. ACCUTANE [Suspect]
     Dates: start: 19980514, end: 19980525

REACTIONS (1)
  - NORMAL NEWBORN [None]
